FAERS Safety Report 7439052-3 (Version None)
Quarter: 2011Q2

REPORT INFORMATION
  Report Type: 
  Country: None (occurrence: None)
  Receive Date: 20110427
  Receipt Date: 20110419
  Transmission Date: 20111010
  Serious: Yes (Other)
  Sender: FDA-Public Use
  Company Number: US-BIOGENIDEC-2011BI015305

PATIENT
  Age: 60 Year
  Sex: Male

DRUGS (5)
  1. AVONEX [Suspect]
     Indication: MULTIPLE SCLEROSIS
     Route: 030
  2. BACLOFEN [Concomitant]
     Indication: MUSCLE SPASMS
  3. ATIVAN [Concomitant]
     Indication: HYPERTENSION
  4. THYROXINE [Concomitant]
     Indication: HYPOTHYROIDISM
  5. REQUIP [Concomitant]
     Indication: TREMOR

REACTIONS (1)
  - COLON CANCER [None]
